FAERS Safety Report 8144020-2 (Version None)
Quarter: 2012Q1

REPORT INFORMATION
  Report Type: 
  Country: None (occurrence: None)
  Receive Date: 20120217
  Receipt Date: 20120217
  Transmission Date: 20120608
  Serious: Yes (Other)
  Sender: FDA-Public Use
  Company Number: None

PATIENT
  Sex: Female
  Weight: 52.163 kg

DRUGS (1)
  1. AVONEX [Suspect]

REACTIONS (4)
  - ASTHENIA [None]
  - FALL [None]
  - PARAESTHESIA [None]
  - PARALYSIS [None]
